FAERS Safety Report 11626799 (Version 1)
Quarter: 2015Q4

REPORT INFORMATION
  Report Type: Spontaneous
  Country: US (occurrence: US)
  Receive Date: 20151013
  Receipt Date: 20151013
  Transmission Date: 20160304
  Serious: No
  Sender: FDA-Public Use
  Company Number: US-MEDA-2015090080

PATIENT
  Age: 54 Year
  Sex: Female
  Weight: 73 kg

DRUGS (4)
  1. ELESTRIN [Suspect]
     Active Substance: ESTRADIOL
     Indication: HOT FLUSH
     Route: 061
     Dates: start: 20150915, end: 201509
  2. ELESTRIN [Suspect]
     Active Substance: ESTRADIOL
     Indication: HOT FLUSH
     Route: 061
     Dates: start: 201509
  3. IBUPROFEN. [Concomitant]
     Active Substance: IBUPROFEN
  4. ELESTRIN [Suspect]
     Active Substance: ESTRADIOL
     Indication: HOT FLUSH
     Route: 061
     Dates: start: 2012, end: 201509

REACTIONS (2)
  - Drug ineffective [Unknown]
  - Product quality issue [Unknown]

NARRATIVE: CASE EVENT DATE: 20150915
